FAERS Safety Report 22339918 (Version 1)
Quarter: 2023Q2

REPORT INFORMATION
  Report Type: Spontaneous
  Country: US (occurrence: US)
  Receive Date: 20230518
  Receipt Date: 20230518
  Transmission Date: 20230721
  Serious: Yes (Other)
  Sender: FDA-Public Use
  Company Number: US-SK LIFE SCIENCE, INC-SKPVG-2023-000521

PATIENT

DRUGS (4)
  1. XCOPRI [Suspect]
     Active Substance: CENOBAMATE
     Indication: Seizure
     Dosage: UNK
     Route: 065
     Dates: start: 20230415
  2. XCOPRI [Suspect]
     Active Substance: CENOBAMATE
     Dosage: 25 MILLIGRAM, ONE A DAY
     Route: 065
  3. ZONISAMIDE [Suspect]
     Active Substance: ZONISAMIDE
     Indication: Product used for unknown indication
     Dosage: UNK
     Route: 065
  4. VIMPAT [Suspect]
     Active Substance: LACOSAMIDE
     Indication: Product used for unknown indication
     Dosage: UNK
     Route: 065

REACTIONS (12)
  - Renal impairment [Unknown]
  - Lymphoedema [Unknown]
  - Chills [Unknown]
  - Axillary pain [Unknown]
  - Lymphadenopathy [Unknown]
  - Circumstance or information capable of leading to medication error [Unknown]
  - Diplopia [Unknown]
  - Dry mouth [Unknown]
  - Back pain [Unknown]
  - Rash [Unknown]
  - Vision blurred [Unknown]
  - Malaise [Unknown]

NARRATIVE: CASE EVENT DATE: 20230508
